FAERS Safety Report 10190654 (Version 5)
Quarter: 2014Q4

REPORT INFORMATION
  Report Type: Report from Study
  Country: IT (occurrence: IT)
  Receive Date: 20140523
  Receipt Date: 20141212
  Transmission Date: 20150528
  Serious: Yes (Hospitalization)
  Sender: FDA-Public Use
  Company Number: IT-ROCHE-1169696

PATIENT
  Age: 62 Year
  Sex: Female
  Weight: 75 kg

DRUGS (8)
  1. BENDAMUSTINE [Suspect]
     Active Substance: BENDAMUSTINE
     Indication: NON-HODGKIN^S LYMPHOMA UNSPECIFIED HISTOLOGY INDOLENT
     Dosage: CYCLE 1 DAY 1?DATE OF LAST DOSE (171.9 MG) : 11/DEC/2012,
     Route: 042
     Dates: start: 20121210, end: 20121210
  2. BENDAMUSTINE [Suspect]
     Active Substance: BENDAMUSTINE
     Dosage: CYCLE 1 DAY 2?DATE OF LAST DOSE (171.9 MG) : 11/DEC/2012,
     Route: 042
     Dates: start: 20121211, end: 20121211
  3. PREDNISONE. [Concomitant]
     Active Substance: PREDNISONE
     Indication: TUMOUR LYSIS SYNDROME
     Route: 065
     Dates: start: 20121210, end: 20121210
  4. OBINUTUZUMAB [Suspect]
     Active Substance: OBINUTUZUMAB
     Indication: NON-HODGKIN^S LYMPHOMA UNSPECIFIED HISTOLOGY INDOLENT
     Dosage: FREQUENCY : DAY.
     Route: 042
     Dates: start: 20121210, end: 20121210
  5. PREDNISONE. [Concomitant]
     Active Substance: PREDNISONE
     Route: 065
     Dates: start: 20121213, end: 20121215
  6. CIPROFLOXACIN. [Concomitant]
     Active Substance: CIPROFLOXACIN
     Route: 065
     Dates: start: 20121214, end: 20121217
  7. CIPROFLOXACIN. [Concomitant]
     Active Substance: CIPROFLOXACIN
     Indication: INFECTION PROPHYLAXIS
     Route: 065
     Dates: start: 20121213
  8. PARACETAMOL [Concomitant]
     Active Substance: ACETAMINOPHEN
     Indication: PYREXIA
     Route: 065
     Dates: start: 20121213, end: 20121215

REACTIONS (1)
  - Pleural effusion [Recovered/Resolved]

NARRATIVE: CASE EVENT DATE: 20121213
